FAERS Safety Report 23195545 (Version 1)
Quarter: 2023Q4

REPORT INFORMATION
  Report Type: Report from Study
  Country: IT (occurrence: IT)
  Receive Date: 20231117
  Receipt Date: 20231117
  Transmission Date: 20240110
  Serious: Yes (Other)
  Sender: FDA-Public Use
  Company Number: None

PATIENT
  Age: 12 Year
  Sex: Male
  Weight: 58 kg

DRUGS (4)
  1. METHOTREXATE (METHOTREXATE SODIUM) [Suspect]
     Active Substance: METHOTREXATE SODIUM
     Indication: Anaplastic large-cell lymphoma
     Dosage: 4827 MILLIGRAM DAILY; 4827 MG/DAY
     Dates: start: 20231009, end: 20231009
  2. CYTARABINE [Suspect]
     Active Substance: CYTARABINE
     Indication: Anaplastic large-cell lymphoma
     Dosage: 482 MILLIGRAM DAILY; 241 MGX 2 TIMES/DAY
     Dates: start: 20231012, end: 20231013
  3. ETOPOSIDE [Suspect]
     Active Substance: ETOPOSIDE
     Indication: Anaplastic large-cell lymphoma
     Dosage: 160 MILLIGRAM DAILY; 160 MG/DAY
     Dates: start: 20231012, end: 20231013
  4. IFOSFAMIDE [Suspect]
     Active Substance: IFOSFAMIDE
     Indication: Anaplastic large-cell lymphoma
     Dosage: 1287 MILLIGRAM DAILY; 1287 MG/DAY
     Dates: start: 20231009, end: 20231013

REACTIONS (7)
  - Leukopenia [Not Recovered/Not Resolved]
  - Lymphopenia [Not Recovered/Not Resolved]
  - Thrombocytopenia [Not Recovered/Not Resolved]
  - Alanine aminotransferase increased [Not Recovered/Not Resolved]
  - Neutropenia [Not Recovered/Not Resolved]
  - Anaemia [Not Recovered/Not Resolved]
  - Alopecia [Not Recovered/Not Resolved]

NARRATIVE: CASE EVENT DATE: 20231017
